FAERS Safety Report 6660558-9 (Version None)
Quarter: 2010Q1

REPORT INFORMATION
  Report Type: 
  Country: None (occurrence: None)
  Receive Date: 20100331
  Receipt Date: 20100318
  Transmission Date: 20100710
  Serious: Yes (Death, Hospitalization)
  Sender: FDA-Public Use
  Company Number: IL-BRISTOL-MYERS SQUIBB COMPANY-15039803

PATIENT
  Age: 33 Year
  Sex: Female

DRUGS (4)
  1. EFAVIRENZ TABS [Suspect]
     Indication: HIV INFECTION
     Route: 065
     Dates: start: 20050101
  2. TRIMETHOPRIM + SULFAMETHOXAZOLE [Suspect]
  3. LAMIVUDINE [Suspect]
  4. TENOFOVIR [Suspect]

REACTIONS (4)
  - CACHEXIA [None]
  - SEPSIS [None]
  - STRONGYLOIDIASIS [None]
  - VOMITING [None]
